FAERS Safety Report 13226377 (Version 1)
Quarter: 2017Q1

REPORT INFORMATION
  Report Type: Spontaneous
  Country: BR (occurrence: BR)
  Receive Date: 20170213
  Receipt Date: 20170213
  Transmission Date: 20170428
  Serious: Yes (Death)
  Sender: FDA-Public Use
  Company Number: BR-PFIZER INC-2017062697

PATIENT
  Age: 80 Year
  Sex: Female

DRUGS (1)
  1. LYRICA [Suspect]
     Active Substance: PREGABALIN
     Indication: PAIN
     Dosage: UNK, 1X/DAY (PRESENTATION: 75 MG X 14 CAPSULES)
     Route: 048

REACTIONS (3)
  - Pneumonia [Fatal]
  - Respiratory tract infection [Fatal]
  - Systemic infection [Fatal]
